FAERS Safety Report 21989359 (Version 1)
Quarter: 2023Q1

REPORT INFORMATION
  Report Type: Spontaneous
  Country: US (occurrence: US)
  Receive Date: 20230214
  Receipt Date: 20230214
  Transmission Date: 20230418
  Serious: No
  Sender: FDA-Public Use
  Company Number: US-FERRINGPH-2022FE04841

PATIENT
  Sex: Female

DRUGS (1)
  1. NOVAREL [Suspect]
     Active Substance: CHORIOGONADOTROPIN ALFA
     Indication: Product used for unknown indication
     Route: 065

REACTIONS (3)
  - Haemoglobin increased [Unknown]
  - Haematocrit increased [Unknown]
  - Red blood cell count increased [Unknown]
